FAERS Safety Report 7617769-5 (Version None)
Quarter: 2011Q3

REPORT INFORMATION
  Report Type: 
  Country: None (occurrence: None)
  Receive Date: 20110718
  Receipt Date: 20110706
  Transmission Date: 20111222
  Serious: Yes (Other)
  Sender: FDA-Public Use
  Company Number: JP-PFIZER INC-2011049561

PATIENT
  Age: 70 Year
  Sex: Female

DRUGS (6)
  1. PRAMIPEXOLE DIHYDROCHLORIDE [Concomitant]
     Indication: PARKINSON'S DISEASE
     Dosage: 1 MG, UNK
     Dates: start: 20080530
  2. FAMOTIDINE [Concomitant]
     Indication: GASTRITIS PROPHYLAXIS
     Dosage: 20 MG, DAILY
     Route: 048
     Dates: start: 20070803
  3. DEPAS [Concomitant]
     Indication: DEPRESSION
     Dosage: 0.5 MG, DAILY
     Route: 048
  4. MENEST [Concomitant]
     Indication: PARKINSON'S DISEASE
     Dosage: 400 MG, UNK
  5. AMLODIPINE [Suspect]
     Indication: HYPERTENSION
     Dosage: 5 MG, DAILY
     Route: 048
     Dates: end: 20080726
  6. SYMMETREL [Concomitant]
     Indication: PARKINSON'S DISEASE
     Dosage: 100 MG, UNK
     Route: 048
     Dates: start: 20070824

REACTIONS (1)
  - PARKINSONISM [None]
